FAERS Safety Report 8260159-5 (Version None)
Quarter: 2012Q2

REPORT INFORMATION
  Report Type: 
  Country: None (occurrence: None)
  Receive Date: 20120404
  Receipt Date: 20120330
  Transmission Date: 20120825
  Serious: Yes (Hospitalization)
  Sender: FDA-Public Use
  Company Number: US-B.I. PHARMACEUTICALS,INC./RIDGEFIELD-2012-BP-04590BP

PATIENT
  Sex: Male
  Weight: 109.31 kg

DRUGS (9)
  1. AMIODARONE HCL [Concomitant]
  2. OMEPRAZOLE [Concomitant]
  3. SINGULAIR [Concomitant]
  4. LOVAZA [Concomitant]
  5. PREDNISONE TAB [Concomitant]
  6. LIVALO [Concomitant]
  7. METOPROLOL TARTRATE [Concomitant]
  8. PRADAXA [Suspect]
     Indication: ATRIAL FIBRILLATION
     Dosage: 300 MG
     Route: 048
     Dates: start: 20110304, end: 20120301
  9. TRILIPIX [Concomitant]

REACTIONS (2)
  - DEEP VEIN THROMBOSIS [None]
  - PULMONARY EMBOLISM [None]
